FAERS Safety Report 4404541-2 (Version None)
Quarter: 2004Q3

REPORT INFORMATION
  Report Type: 
  Country: None (occurrence: None)
  Receive Date: 20040720
  Receipt Date: 20040707
  Transmission Date: 20050211
  Serious: Yes (Other)
  Sender: FDA-Public Use
  Company Number: 2004046135

PATIENT
  Age: 5 Month
  Sex: Female
  Weight: 3 kg

DRUGS (4)
  1. EPANUTIN INJECTABLE (PHENYTOIN SODIUM) [Suspect]
     Indication: EPILEPSY
     Dosage: INTRAVENOUS;  ORAL
     Route: 042
     Dates: start: 20040101
  2. EPANUTIN INJECTABLE (PHENYTOIN SODIUM) [Suspect]
     Indication: EPILEPSY
     Dosage: INTRAVENOUS;  ORAL
     Route: 042
     Dates: start: 20040604
  3. PHENOBARBITAL TAB [Concomitant]
  4. VIGABATRIN (VIGABATRIN) [Concomitant]

REACTIONS (2)
  - ANTICONVULSANT DRUG LEVEL BELOW THERAPEUTIC [None]
  - CONVULSION [None]
